FAERS Safety Report 6528337 (Version 2)
Quarter: 2020Q3

REPORT INFORMATION
  Report Type: Report from Study
  Country: JP (occurrence: JP)
  Receive Date: 20080116
  Receipt Date: 20131010
  Transmission Date: 20201104
  Serious: Yes (Other)
  Sender: FDA-Public Use
  Company Number: JP-JNJFOC-20070604996

PATIENT
  Age: 59 Year
  Sex: Male

DRUGS (15)
  1. VANCOMYCIN [Suspect]
     Active Substance: VANCOMYCIN
     Indication: SEPSIS
     Route: 041
     Dates: start: 20070219, end: 20070223
  2. MAXIPIME [Suspect]
     Active Substance: CEFEPIME HYDROCHLORIDE
     Indication: SEPSIS
     Dosage: DOSE UNKNOWN
     Route: 041
     Dates: start: 20070216, end: 20070219
  3. DIFLUCAN [Concomitant]
     Active Substance: FLUCONAZOLE
     Dosage: DOSE UNKNOWN
     Route: 048
     Dates: start: 20070129
  4. CIRCANETTEN [Concomitant]
     Active Substance: KERATIN\SENNA LEAF
     Dosage: DOSE UNKNOWN
     Route: 048
     Dates: start: 20070208, end: 20070223
  5. GASTER [Concomitant]
     Active Substance: FAMOTIDINE
     Dosage: DOSE UNKNOWN
     Route: 048
     Dates: start: 20070129
  6. LASTET [Concomitant]
     Active Substance: ETOPOSIDE
     Route: 041
     Dates: start: 20070206, end: 20070209
  7. FINIBAX [Suspect]
     Active Substance: DORIPENEM MONOHYDRATE
     Indication: SEPSIS
     Route: 041
     Dates: start: 20070219, end: 20070219
  8. FINIBAX [Suspect]
     Active Substance: DORIPENEM MONOHYDRATE
     Indication: SEPSIS
     Route: 041
     Dates: start: 20070220, end: 20070223
  9. MUCOSTA [Concomitant]
     Active Substance: REBAMIPIDE
     Dosage: DOSE UNKNOWN
     Route: 048
     Dates: start: 20070129
  10. BAKTAR [Concomitant]
     Active Substance: SULFAMETHOXAZOLE\TRIMETHOPRIM
     Indication: INFECTION PROPHYLAXIS
     Dosage: DOSE UNKNOWN
     Route: 048
     Dates: start: 20070129
  11. SOFARIN [Concomitant]
     Dosage: DOSE UNKNOWN
     Route: 048
     Dates: start: 20070208, end: 20070223
  12. LOXONIN [Concomitant]
     Active Substance: LOXOPROFEN SODIUM
     Indication: SEPSIS
     Dosage: DOSE UNKNOWN
     Route: 048
     Dates: start: 20070217, end: 20070220
  13. CYCLOCIDE [Concomitant]
     Active Substance: CYTARABINE
     Route: 041
     Dates: start: 20070206, end: 20070209
  14. ALKERAN [Concomitant]
     Active Substance: MELPHALAN
     Dosage: DOSE UNKNOWN
     Route: 042
     Dates: start: 20070210, end: 20070210
  15. RITUXAN [Concomitant]
     Active Substance: RITUXIMAB
     Dosage: DOSE UNKNOWN
     Route: 041
     Dates: start: 20070211, end: 20070211

REACTIONS (3)
  - Blood creatinine increased [Not Recovered/Not Resolved]
  - Liver disorder [Recovering/Resolving]
  - Blood urea increased [Not Recovered/Not Resolved]

NARRATIVE: CASE EVENT DATE: 20070221
